FAERS Safety Report 12119876 (Version 5)
Quarter: 2016Q4

REPORT INFORMATION
  Report Type: Spontaneous
  Country: US (occurrence: US)
  Receive Date: 20160226
  Receipt Date: 20161110
  Transmission Date: 20170206
  Serious: Yes (Other)
  Sender: FDA-Public Use
  Company Number: US-PFIZER INC-2016115388

PATIENT
  Age: 57 Year
  Sex: Male
  Weight: 85 kg

DRUGS (15)
  1. LYRICA [Suspect]
     Active Substance: PREGABALIN
     Indication: MUSCULOSKELETAL PAIN
     Dosage: 150 MG, DAILY (100MG IN THE MORNING AND 50MG IN THE EVENING)
     Dates: start: 2015, end: 2015
  2. LYRICA [Suspect]
     Active Substance: PREGABALIN
     Indication: ROAD TRAFFIC ACCIDENT
     Dosage: 2X/DAY (150MG IN THE DAY AND 200MG AT NIGHT)
  3. LYRICA [Suspect]
     Active Substance: PREGABALIN
     Indication: NECK PAIN
     Dosage: 100 MG, 2X/DAY (100MG IN THE MORNING AND 100MG AT NIGHT)
     Dates: start: 2015, end: 2015
  4. GLIPIZIDE. [Concomitant]
     Active Substance: GLIPIZIDE
     Indication: DIABETES MELLITUS
     Dosage: 20 MG, 2X/DAY (20MG IN THE MORNING AND 20MG AT NIGHT)
     Dates: start: 1980
  5. LYRICA [Suspect]
     Active Substance: PREGABALIN
     Indication: SPINAL CORD INJURY
     Dosage: 200 MG, 2X/DAY (IN THE MORNING AND AT NIGHT)
     Route: 048
  6. LYRICA [Suspect]
     Active Substance: PREGABALIN
     Indication: PAIN IN EXTREMITY
     Dosage: 50 MG, 2X/DAY (50MG IN THE MORNING AND 50MG AT NIGHT)
     Dates: start: 2015, end: 2015
  7. MELOXICAM. [Concomitant]
     Active Substance: MELOXICAM
     Dosage: 15 MG, UNK
  8. LYRICA [Suspect]
     Active Substance: PREGABALIN
     Indication: BACK PAIN
     Dosage: 150 MG, 2X/DAY
  9. LYRICA [Suspect]
     Active Substance: PREGABALIN
     Indication: FIBROMYALGIA
     Dosage: 300MG CAPSULE AT 6AM, 300MG CAPSULE AT 6PM AND A 100MG CAPSULE BETWEEN 10-10:30 AT NIGHT
     Dates: start: 201512
  10. LYRICA [Suspect]
     Active Substance: PREGABALIN
     Dosage: 800 MG, DAILY (300MG, 6:00AM, 2:00PM AND 200MG AT 10:00PM; TOTAL 800 MG)
     Dates: start: 20160426
  11. GEMFIBROZIL. [Concomitant]
     Active Substance: GEMFIBROZIL
     Indication: DIABETES MELLITUS
     Dosage: 600 MG, 2X/DAY (6:00AM, 6:00PM)
     Dates: start: 1980
  12. LYRICA [Suspect]
     Active Substance: PREGABALIN
     Indication: DIABETES MELLITUS
     Dosage: UNK
  13. LYRICA [Suspect]
     Active Substance: PREGABALIN
     Dosage: 900 MG, DAILY (300 MG CAPSULE / QTY 90 / DAY SUPPLY 30)
  14. LANTUS [Concomitant]
     Active Substance: INSULIN GLARGINE
     Indication: DIABETES MELLITUS
     Dosage: 18 IU, 1X/DAY (18 UNITS INJECTED AT 9PM, OR 10:00 PM)
     Dates: start: 201512
  15. IBUPROFEN. [Concomitant]
     Active Substance: IBUPROFEN
     Indication: PAIN MANAGEMENT
     Dosage: 800 MG, 3X/DAY (6:00AM, 2:00PM, 10:00PM)
     Dates: start: 2016

REACTIONS (19)
  - Prescribed overdose [Not Recovered/Not Resolved]
  - Confusional state [Not Recovered/Not Resolved]
  - Neck pain [Unknown]
  - Feeling of body temperature change [Unknown]
  - Weight increased [Not Recovered/Not Resolved]
  - Vision blurred [Not Recovered/Not Resolved]
  - Pain in extremity [Unknown]
  - Headache [Unknown]
  - Feeling hot [Unknown]
  - Dizziness [Not Recovered/Not Resolved]
  - Peripheral swelling [Not Recovered/Not Resolved]
  - Sleep disorder [Unknown]
  - Musculoskeletal pain [Unknown]
  - Feeling cold [Unknown]
  - Feeling of relaxation [Not Recovered/Not Resolved]
  - Fall [Unknown]
  - Carpal tunnel syndrome [Not Recovered/Not Resolved]
  - Cognitive disorder [Unknown]
  - Back pain [Unknown]

NARRATIVE: CASE EVENT DATE: 201512
